FAERS Safety Report 24371892 (Version 1)
Quarter: 2024Q3

REPORT INFORMATION
  Report Type: Spontaneous
  Country: US (occurrence: None)
  Receive Date: 20240926
  Receipt Date: 20240926
  Transmission Date: 20241017
  Serious: Yes (Other)
  Sender: Public
  Company Number: None

PATIENT
  Age: 56 Year
  Sex: Female

DRUGS (4)
  1. XDEMVY [Suspect]
     Active Substance: LOTILANER
     Indication: Demodex blepharitis
     Dosage: 1 DROP EACY EYE BID OPHTHALMIC
     Route: 047
     Dates: start: 20240813, end: 20240817
  2. Allegra allergy 180 mg tabs [Concomitant]
  3. LOSARTAN [Concomitant]
     Active Substance: LOSARTAN\LOSARTAN POTASSIUM
  4. PANTOPRAZOLE [Concomitant]
     Active Substance: PANTOPRAZOLE

REACTIONS (5)
  - Therapy interrupted [None]
  - Eye irritation [None]
  - Photophobia [None]
  - Headache [None]
  - Blepharitis [None]

NARRATIVE: CASE EVENT DATE: 20240926
